FAERS Safety Report 11293208 (Version 2)
Quarter: 2015Q3

REPORT INFORMATION
  Report Type: Spontaneous
  Country: US (occurrence: US)
  Receive Date: 20150722
  Receipt Date: 20150814
  Transmission Date: 20151125
  Serious: Yes (Other)
  Sender: FDA-Public Use
  Company Number: US-GILEAD-2015-0162044

PATIENT
  Age: 62 Year
  Sex: Female
  Weight: 94.33 kg

DRUGS (2)
  1. SOVALDI [Suspect]
     Active Substance: SOFOSBUVIR
     Indication: HEPATITIS C
     Dosage: 400 MG, UNK
     Route: 048
     Dates: end: 201504
  2. RIBASPHERE [Concomitant]
     Active Substance: RIBAVIRIN
     Indication: HEPATITIS C
     Dosage: 600 MG, BID
     Route: 048
     Dates: end: 201504

REACTIONS (5)
  - Weight decreased [Not Recovered/Not Resolved]
  - Poor dental condition [Unknown]
  - Sinusitis [Unknown]
  - Cognitive disorder [Unknown]
  - Lip blister [Unknown]

NARRATIVE: CASE EVENT DATE: 20140909
